FAERS Safety Report 25385810 (Version 2)
Quarter: 2025Q2

REPORT INFORMATION
  Report Type: Spontaneous
  Country: EE (occurrence: EE)
  Receive Date: 20250602
  Receipt Date: 20250603
  Transmission Date: 20250717
  Serious: Yes (Hospitalization, Other)
  Sender: BRISTOL-MYERS SQUIBB COMPANY
  Company Number: EE-IPSEN Group, Research and Development-2025-11917

PATIENT
  Age: 66 Year
  Sex: Male

DRUGS (2)
  1. NIVOLUMAB [Suspect]
     Active Substance: NIVOLUMAB
     Indication: Clear cell renal cell carcinoma
  2. CABOMETYX [Suspect]
     Active Substance: CABOZANTINIB S-MALATE
     Indication: Clear cell renal cell carcinoma
     Dates: start: 202302

REACTIONS (4)
  - Gastrointestinal carcinoma [Unknown]
  - Pneumonia [Recovering/Resolving]
  - Pulmonary haemorrhage [Recovering/Resolving]
  - Off label use [Unknown]
